FAERS Safety Report 7732858-2 (Version None)
Quarter: 2011Q3

REPORT INFORMATION
  Report Type: 
  Country: None (occurrence: None)
  Receive Date: 20110907
  Receipt Date: 20110831
  Transmission Date: 20111222
  Serious: Yes (Other)
  Sender: FDA-Public Use
  Company Number: PHHY2011FR77956

PATIENT
  Age: 48 Year
  Sex: Female

DRUGS (5)
  1. RITUXIMAB [Suspect]
     Indication: CHEMOTHERAPY
     Dosage: 375 MG/M2, UNK
  2. DOXORUBICIN HCL [Suspect]
     Indication: CHEMOTHERAPY
     Dosage: 50 MG/M2, UNK
  3. VINCRISTINE [Suspect]
     Indication: CHEMOTHERAPY
     Dosage: 1.4 MG/M2, UNK
  4. PREDNISOLONE [Suspect]
     Indication: CHEMOTHERAPY
     Dosage: 100 MG/M2, UNK
  5. CYCLOPHOSPHAMIDE [Suspect]
     Indication: CHEMOTHERAPY
     Dosage: 750 MG/M2, UNK

REACTIONS (7)
  - PANCYTOPENIA [None]
  - LUNG DISORDER [None]
  - PULMONARY NECROSIS [None]
  - COUGH [None]
  - LUNG ABSCESS [None]
  - PLEURAL EFFUSION [None]
  - CHEST PAIN [None]
